FAERS Safety Report 20609184 (Version 3)
Quarter: 2022Q2

REPORT INFORMATION
  Report Type: Spontaneous
  Country: JP (occurrence: JP)
  Receive Date: 20220317
  Receipt Date: 20220408
  Transmission Date: 20220721
  Serious: Yes (Other)
  Sender: FDA-Public Use
  Company Number: JP-MALLINCKRODT-T202201189

PATIENT
  Age: 80 Year
  Sex: Female

DRUGS (4)
  1. AMITIZA [Suspect]
     Active Substance: LUBIPROSTONE
     Dosage: 24 MICROGRAM, DAILY
     Route: 048
     Dates: start: 2017
  2. AMITIZA [Suspect]
     Active Substance: LUBIPROSTONE
     Dosage: 12 MICROGRAM, QD
     Route: 048
     Dates: start: 2017
  3. ELOBIXIBAT [Suspect]
     Active Substance: ELOBIXIBAT
     Indication: Product used for unknown indication
  4. ADALAT CC [Suspect]
     Active Substance: NIFEDIPINE
     Indication: Product used for unknown indication
     Dosage: UNK
     Route: 048

REACTIONS (4)
  - Retroperitonitis [Recovered/Resolved]
  - Mesenteric panniculitis [Recovered/Resolved]
  - Peripancreatic fluid collection [Recovered/Resolved]
  - Inappropriate schedule of product administration [Unknown]

NARRATIVE: CASE EVENT DATE: 20170228
